FAERS Safety Report 13072943 (Version 2)
Quarter: 2017Q1

REPORT INFORMATION
  Report Type: Spontaneous
  Country: US (occurrence: US)
  Receive Date: 20161229
  Receipt Date: 20170106
  Transmission Date: 20170428
  Serious: No
  Sender: FDA-Public Use
  Company Number: US-PFIZER INC-2016601269

PATIENT
  Age: 95 Year
  Sex: Female
  Weight: 57 kg

DRUGS (3)
  1. IBRANCE [Suspect]
     Active Substance: PALBOCICLIB
     Dosage: 75 MG, CYCLIC (ONCE DAILY)
     Dates: start: 2016, end: 201612
  2. IBRANCE [Suspect]
     Active Substance: PALBOCICLIB
     Dosage: 100 MG, CYCLIC (ONCE DAILY)
     Dates: start: 2016
  3. IBRANCE [Suspect]
     Active Substance: PALBOCICLIB
     Indication: BREAST CANCER
     Dosage: 125 MG, CYCLIC (ONCE DAILY, ROUND OF 21 DAYS)
     Dates: start: 2016

REACTIONS (1)
  - White blood cell count decreased [Recovering/Resolving]

NARRATIVE: CASE EVENT DATE: 2016
